FAERS Safety Report 16058654 (Version 1)
Quarter: 2019Q1

REPORT INFORMATION
  Report Type: Report from Study
  Country: IE (occurrence: IE)
  Receive Date: 20190311
  Receipt Date: 20190311
  Transmission Date: 20190418
  Serious: Yes (Life-Threatening, Hospitalization)
  Sender: FDA-Public Use
  Company Number: IE-JNJFOC-20190305816

PATIENT
  Age: 73 Year
  Sex: Female

DRUGS (15)
  1. ALDACTONE [Concomitant]
     Active Substance: SPIRONOLACTONE
     Route: 050
  2. ASPIRIN. [Concomitant]
     Active Substance: ASPIRIN
     Route: 050
  3. STELARA [Suspect]
     Active Substance: USTEKINUMAB
     Indication: PSORIASIS
     Route: 058
  4. ALPRAZOLAM. [Concomitant]
     Active Substance: ALPRAZOLAM
     Dosage: NIGHT
     Route: 050
  5. FUROSEMIDE. [Concomitant]
     Active Substance: FUROSEMIDE
     Route: 050
  6. PREGABALIN. [Concomitant]
     Active Substance: PREGABALIN
     Route: 050
  7. WARFARIN [Concomitant]
     Active Substance: WARFARIN
     Route: 050
  8. PARACETAMOL [Concomitant]
     Active Substance: ACETAMINOPHEN
     Dosage: PRN
     Route: 050
  9. BISOPROLOL [Concomitant]
     Active Substance: BISOPROLOL
     Route: 050
  10. METFORMIN [Concomitant]
     Active Substance: METFORMIN HYDROCHLORIDE
     Route: 050
  11. FOLIC ACID. [Concomitant]
     Active Substance: FOLIC ACID
     Route: 050
  12. ACITRETIN. [Concomitant]
     Active Substance: ACITRETIN
     Route: 050
  13. OMEPRAZOLE. [Concomitant]
     Active Substance: OMEPRAZOLE
     Route: 050
  14. EZETIMIBE. [Concomitant]
     Active Substance: EZETIMIBE
     Route: 050
  15. TRAMADOL. [Concomitant]
     Active Substance: TRAMADOL
     Route: 050

REACTIONS (1)
  - Renal failure [Unknown]

NARRATIVE: CASE EVENT DATE: 20190304
